FAERS Safety Report 13926084 (Version 2)
Quarter: 2017Q3

REPORT INFORMATION
  Report Type: Spontaneous
  Country: FR (occurrence: FR)
  Receive Date: 20170831
  Receipt Date: 20170913
  Transmission Date: 20171127
  Serious: Yes (Other)
  Sender: FDA-Public Use
  Company Number: FR-BAYER-2017-166856

PATIENT
  Age: 31 Year
  Sex: Female
  Weight: 74 kg

DRUGS (1)
  1. MIRENA [Suspect]
     Active Substance: LEVONORGESTREL
     Indication: CHEMICAL CONTRACEPTION
     Dosage: 20 MCG/24HR, CONT
     Route: 015
     Dates: start: 201410, end: 20170825

REACTIONS (7)
  - Abdominal distension [Recovering/Resolving]
  - Tachycardia [Unknown]
  - Fatigue [Recovering/Resolving]
  - Weight increased [Recovering/Resolving]
  - Diffuse alopecia [Not Recovered/Not Resolved]
  - Vertigo [Recovered/Resolved]
  - Anxiety [Recovering/Resolving]

NARRATIVE: CASE EVENT DATE: 201503
